FAERS Safety Report 7564393-9 (Version None)
Quarter: 2011Q2

REPORT INFORMATION
  Report Type: 
  Country: None (occurrence: None)
  Receive Date: 20110622
  Receipt Date: 20110609
  Transmission Date: 20111010
  Serious: Yes (Hospitalization, Other)
  Sender: FDA-Public Use
  Company Number: PHHY2011CA52376

PATIENT
  Sex: Female

DRUGS (5)
  1. ZOLEDRONIC ACID [Suspect]
     Dosage: UNK
     Route: 042
     Dates: start: 20110609
  2. ATENOLOL [Concomitant]
  3. HYDROCHLOROTHIAZIDE [Concomitant]
  4. ZOLEDRONIC ACID [Suspect]
     Indication: OSTEOPOROSIS
     Dosage: UNK
     Route: 042
     Dates: start: 20100610
  5. NEXIUM [Concomitant]

REACTIONS (3)
  - LIMB DISCOMFORT [None]
  - PAIN IN EXTREMITY [None]
  - FEMUR FRACTURE [None]
